FAERS Safety Report 10339601 (Version 1)
Quarter: 2014Q3

REPORT INFORMATION
  Report Type: Spontaneous
  Country: DE (occurrence: DE)
  Receive Date: 20140724
  Receipt Date: 20140724
  Transmission Date: 20150326
  Serious: Yes (Other)
  Sender: FDA-Public Use
  Company Number: PHHY2014DE087828

PATIENT
  Age: 5 Year
  Sex: Female

DRUGS (5)
  1. PROPRANOLOL [Suspect]
     Active Substance: PROPRANOLOL\PROPRANOLOL HYDROCHLORIDE
     Indication: ARRHYTHMIA
     Dosage: 5 MG/KG/DAY, (4-5 MG/KG/DAY)
  2. PROPAFENONE. [Suspect]
     Active Substance: PROPAFENONE
     Indication: ARRHYTHMIA
  3. AMIODARONE [Suspect]
     Active Substance: AMIODARONE
     Indication: ARRHYTHMIA
  4. VERAPAMIL [Suspect]
     Active Substance: VERAPAMIL HYDROCHLORIDE
     Indication: ARRHYTHMIA
  5. DIGOXIN. [Suspect]
     Active Substance: DIGOXIN
     Indication: ARRHYTHMIA

REACTIONS (8)
  - Arrhythmia supraventricular [Unknown]
  - Sinus arrest [Unknown]
  - Condition aggravated [Recovering/Resolving]
  - Syncope [Unknown]
  - Drug ineffective [Recovering/Resolving]
  - Arrhythmia [Recovering/Resolving]
  - Bradycardia [Recovering/Resolving]
  - Torsade de pointes [Recovering/Resolving]
